FAERS Safety Report 4449013-4 (Version None)
Quarter: 2004Q3

REPORT INFORMATION
  Report Type: 
  Country: None (occurrence: None)
  Receive Date: 20040910
  Receipt Date: 20040830
  Transmission Date: 20050211
  Serious: Yes (Hospitalization, Other)
  Sender: FDA-Public Use
  Company Number: 2004230921SK

PATIENT
  Age: 45 Year
  Sex: Female

DRUGS (5)
  1. CAMPTOSAR [Suspect]
     Indication: RECTAL CANCER RECURRENT
     Dosage: 140 MG, EVERY 3 WEEKS, CYCLIC, IV
     Route: 042
     Dates: start: 20040430
  2. FLUOROURACIL [Concomitant]
  3. LEUCOVORIN CALCIUM [Concomitant]
  4. DEXAMETHASONE [Concomitant]
  5. ONDANSETRON HCL [Concomitant]

REACTIONS (7)
  - DERMATITIS ALLERGIC [None]
  - HYPERSENSITIVITY [None]
  - MOVEMENT DISORDER [None]
  - NERVOUS SYSTEM DISORDER [None]
  - NEUROLOGICAL SYMPTOM [None]
  - SKIN TOXICITY [None]
  - TONGUE PARALYSIS [None]
